FAERS Safety Report 17209765 (Version 1)
Quarter: 2019Q4

REPORT INFORMATION
  Report Type: Spontaneous
  Country: FR (occurrence: FR)
  Receive Date: 20191227
  Receipt Date: 20191227
  Transmission Date: 20200122
  Serious: Yes (Other)
  Sender: FDA-Public Use
  Company Number: FR-SAMSUNG BIOEPIS-SB-2019-38919

PATIENT
  Age: 37 Year
  Sex: Female

DRUGS (4)
  1. PREDNISONE. [Suspect]
     Active Substance: PREDNISONE
     Indication: ABORTION SPONTANEOUS
     Dosage: 10 MG, QD
     Route: 065
  2. GLYCINE MAX SEED OIL [Concomitant]
     Indication: ABORTION SPONTANEOUS
     Dosage: UNKNOWN
     Route: 041
  3. ADALIMUMAB [Suspect]
     Active Substance: ADALIMUMAB
     Indication: ABORTION SPONTANEOUS
     Dosage: 40 MG, Q2W
     Route: 058
  4. ACETYLSALICYLIC ACID [Suspect]
     Active Substance: ASPIRIN
     Indication: ABORTION SPONTANEOUS
     Dosage: 100 MG, QD
     Route: 065

REACTIONS (5)
  - Drug ineffective [Unknown]
  - Maternal exposure during pregnancy [Unknown]
  - Off label use [Unknown]
  - Intentional product use issue [Unknown]
  - Live birth [Unknown]
